FAERS Safety Report 18218948 (Version 1)
Quarter: 2020Q3

REPORT INFORMATION
  Report Type: Spontaneous
  Country: AU (occurrence: AU)
  Receive Date: 20200901
  Receipt Date: 20200901
  Transmission Date: 20201103
  Serious: Yes (Other)
  Sender: FDA-Public Use
  Company Number: AU-ALLERGAN-2032669US

PATIENT
  Sex: Male

DRUGS (13)
  1. ESOMEPRAZOLE. [Concomitant]
     Active Substance: ESOMEPRAZOLE MAGNESIUM
     Dosage: 1 DF, QD
     Route: 065
  2. ZUCLOPENTHIXOL ACETATE [Suspect]
     Active Substance: ZUCLOPENTHIXOL ACETATE
     Indication: PRODUCT USED FOR UNKNOWN INDICATION
     Dosage: UNK
     Route: 065
  3. FLUDROCORTISONE [Concomitant]
     Active Substance: FLUDROCORTISONE
     Dosage: 1 DF, QD
     Route: 065
  4. CLOZAPINE. [Suspect]
     Active Substance: CLOZAPINE
     Dosage: UNK
     Route: 065
     Dates: start: 2010, end: 2018
  5. CYPROTERONE [Concomitant]
     Active Substance: CYPROTERONE
     Dosage: 50 MG
     Route: 065
  6. HALOPERIDOL DEPOT [Concomitant]
     Active Substance: HALOPERIDOL
     Dosage: 300 MG
     Route: 030
  7. THIAMINE. [Concomitant]
     Active Substance: THIAMINE
     Dosage: 1 DF, QD
     Route: 065
  8. BENZATROPINE [Concomitant]
     Active Substance: BENZTROPINE
     Dosage: 0.5 MG, QD
     Route: 065
  9. ESCITALOPRAM OXALATE ? BP [Suspect]
     Active Substance: ESCITALOPRAM OXALATE
     Indication: PRODUCT USED FOR UNKNOWN INDICATION
     Dosage: 20 MG, QD
     Route: 065
  10. CHLORPROMAZINE. [Concomitant]
     Active Substance: CHLORPROMAZINE
     Dosage: 300 MG
     Route: 065
  11. CLOZAPINE. [Suspect]
     Active Substance: CLOZAPINE
     Indication: PRODUCT USED FOR UNKNOWN INDICATION
     Dosage: UNK
     Route: 065
     Dates: start: 20181029, end: 201812
  12. COLECALCIFEROL [Concomitant]
     Active Substance: CHOLECALCIFEROL
     Dosage: 1 DF, QD
     Route: 065
  13. LAMOTRIGINE. [Concomitant]
     Active Substance: LAMOTRIGINE
     Dosage: 50 MG, QD
     Route: 065

REACTIONS (4)
  - Neutropenia [Unknown]
  - Neuroleptic malignant syndrome [Unknown]
  - Rebound psychosis [Unknown]
  - Myocarditis [Unknown]

NARRATIVE: CASE EVENT DATE: 2018
